FAERS Safety Report 4495047-3 (Version None)
Quarter: 2004Q4

REPORT INFORMATION
  Report Type: 
  Country: None (occurrence: None)
  Receive Date: 20041104
  Receipt Date: 20041018
  Transmission Date: 20050328
  Serious: Yes (Death)
  Sender: FDA-Public Use
  Company Number: 2004-BP-10446RO

PATIENT
  Age: 3 Month
  Sex: 0

DRUGS (2)
  1. PSEUDOEPHEDRINE HCL [Suspect]
  2. ACETAMINOPHEN W/PSEUDOEPHEDRINE (DAY + NIGHT COLD + FLU TABLETS) [Suspect]

REACTIONS (3)
  - ACCIDENTAL EXPOSURE [None]
  - MEDICATION ERROR [None]
  - MULTIPLE DRUG OVERDOSE [None]
